FAERS Safety Report 9507868 (Version 1)
Quarter: 2013Q3

REPORT INFORMATION
  Report Type: Other
  Country: GB (occurrence: GB)
  Receive Date: 20130909
  Receipt Date: 20130909
  Transmission Date: 20140515
  Serious: Yes (Hospitalization, Other)
  Sender: FDA-Public Use
  Company Number: GB-TARO PHARMACEUTICALS U.S.A., INC-2013SUN04583

PATIENT
  Age: 46 Year
  Sex: Female

DRUGS (7)
  1. WARFARIN [Suspect]
     Indication: MITRAL VALVE REPLACEMENT
     Route: 048
  2. WARFARIN [Suspect]
     Route: 048
  3. BISOPROLOL [Concomitant]
     Dosage: 10 MG, DAILY
  4. FUROSEMIDE [Concomitant]
     Dosage: 60 MG, DAILY
  5. LEVOTHYROXINE [Concomitant]
     Dosage: 75 MCG, DAILY
  6. MINOCYCLINE [Concomitant]
     Indication: ACNE
     Dosage: 100 MG, DAILY
  7. PRAVASTATIN [Concomitant]
     Dosage: 20 MG, DAILY

REACTIONS (9)
  - Sensory disturbance [Unknown]
  - VIIth nerve paralysis [Unknown]
  - Urinary incontinence [Unknown]
  - Fall [Unknown]
  - Dysarthria [Unknown]
  - Hemiparesis [Recovered/Resolved]
  - Transient ischaemic attack [Recovered/Resolved]
  - Anticoagulation drug level below therapeutic [Unknown]
  - Headache [Unknown]
